FAERS Safety Report 25985505 (Version 3)
Quarter: 2025Q4

REPORT INFORMATION
  Report Type: Spontaneous
  Country: US (occurrence: US)
  Receive Date: 20251101
  Receipt Date: 20251111
  Transmission Date: 20260118
  Serious: No
  Sender: NOVARTIS
  Company Number: US-002147023-NVSC2025US168800

PATIENT
  Sex: Male

DRUGS (1)
  1. RHAPSIDO [Suspect]
     Active Substance: REMIBRUTINIB
     Indication: Product used for unknown indication
     Dosage: 25 MG
     Route: 065

REACTIONS (1)
  - Drug ineffective [Unknown]
